FAERS Safety Report 13642350 (Version 2)
Quarter: 2018Q1

REPORT INFORMATION
  Report Type: Spontaneous
  Country: GB (occurrence: GB)
  Receive Date: 20170612
  Receipt Date: 20180309
  Transmission Date: 20180508
  Serious: Yes (Hospitalization, Other)
  Sender: FDA-Public Use
  Company Number: GB-AUROBINDO-AUR-APL-2017-33423

PATIENT
  Age: 68 Year
  Sex: Female

DRUGS (7)
  1. HYDROXYCHLOROQUINE [Concomitant]
     Active Substance: HYDROXYCHLOROQUINE
     Indication: RHEUMATOID ARTHRITIS
     Dosage: UNK
     Route: 065
  2. DEXAMETHASONE. [Concomitant]
     Active Substance: DEXAMETHASONE
     Dosage: 4 MILLIGRAM
     Route: 048
  3. VORICONAZOLE FILM COATED TABLET [Suspect]
     Active Substance: VORICONAZOLE
     Dosage: 200 MG, TWO TIMES A DAY
  4. VORICONAZOLE FILM COATED TABLET [Suspect]
     Active Substance: VORICONAZOLE
     Indication: ASPERGILLUS INFECTION
     Dosage: 400 MG, UNK
     Route: 065
     Dates: start: 201607
  5. SULFASALAZINE. [Concomitant]
     Active Substance: SULFASALAZINE
     Indication: RHEUMATOID ARTHRITIS
     Dosage: UNK
     Route: 065
  6. METHOTREXATE. [Suspect]
     Active Substance: METHOTREXATE
     Indication: RHEUMATOID ARTHRITIS
     Dosage: ONCE WEEKLY
     Route: 065
  7. DEXAMETHASONE. [Concomitant]
     Active Substance: DEXAMETHASONE
     Indication: PRODUCT USED FOR UNKNOWN INDICATION
     Dosage: 4 MG, FOUR TIMES/DAY
     Route: 048

REACTIONS (12)
  - Asthenia [Recovered/Resolved]
  - Intracranial mass [Recovered/Resolved]
  - Brain midline shift [Recovering/Resolving]
  - Cerebral aspergillosis [Recovering/Resolving]
  - Acute haemorrhagic leukoencephalitis [Recovering/Resolving]
  - Aphasia [Recovered/Resolved]
  - Brain oedema [Recovering/Resolving]
  - Aspergillus infection [Recovering/Resolving]
  - Confusional state [Recovered/Resolved]
  - Culture tissue specimen positive [Recovering/Resolving]
  - Leukopenia [Recovered/Resolved]
  - Hemiparesis [Recovering/Resolving]
